FAERS Safety Report 5738228-0 (Version None)
Quarter: 2008Q2

REPORT INFORMATION
  Report Type: 
  Country: None (occurrence: None)
  Receive Date: 20080514
  Receipt Date: 20080502
  Transmission Date: 20081010
  Serious: Yes (Death, Other)
  Sender: FDA-Public Use
  Company Number: US-PFIZER INC-2008033095

PATIENT
  Sex: Female
  Weight: 58.6 kg

DRUGS (15)
  1. REVATIO [Suspect]
     Indication: PULMONARY ARTERIAL HYPERTENSION
     Route: 048
  2. ASACOL [Concomitant]
  3. FOSAMAX [Concomitant]
  4. ACETYLSALICYLIC ACID SRT [Concomitant]
  5. PREVACID [Concomitant]
  6. SORIATANE [Concomitant]
  7. TYLENOL [Concomitant]
  8. VITAMIN E [Concomitant]
  9. LIPITOR [Concomitant]
  10. LASIX [Concomitant]
  11. CALCIUM [Concomitant]
  12. IMODIUM A-D [Concomitant]
  13. TRACLEER [Concomitant]
  14. CITALOPRAM HYDROBROMIDE [Concomitant]
  15. AMIODARONE HCL [Concomitant]

REACTIONS (4)
  - DEPRESSION [None]
  - HYPOKALAEMIA [None]
  - RIGHT VENTRICULAR FAILURE [None]
  - WHEEZING [None]
